FAERS Safety Report 5805193-7 (Version None)
Quarter: 2008Q3

REPORT INFORMATION
  Report Type: 
  Country: None (occurrence: None)
  Receive Date: 20080707
  Receipt Date: 20080620
  Transmission Date: 20090109
  Serious: Yes (Other)
  Sender: FDA-Public Use
  Company Number: JPI-P-003999

PATIENT
  Age: 80 Year
  Sex: Male

DRUGS (3)
  1. ANTIZOL [Suspect]
     Indication: CHEMICAL POISONING
     Dosage: SEE IMAGE
     Route: 042
     Dates: start: 20080101
  2. ANTIZOL [Suspect]
     Indication: CHEMICAL POISONING
     Dosage: SEE IMAGE
     Route: 042
     Dates: start: 20080101
  3. ANTIZOL [Suspect]
     Indication: CHEMICAL POISONING
     Dosage: SEE IMAGE
     Route: 042
     Dates: start: 20080618

REACTIONS (2)
  - DIALYSIS [None]
  - THROMBOCYTOPENIA [None]
